FAERS Safety Report 18940370 (Version 1)
Quarter: 2021Q1

REPORT INFORMATION
  Report Type: Spontaneous
  Country: GB (occurrence: GB)
  Receive Date: 20210225
  Receipt Date: 20210225
  Transmission Date: 20210420
  Serious: Yes (Other)
  Sender: FDA-Public Use
  Company Number: GB-TEVA-2021-GB-1881001

PATIENT
  Age: 31 Year
  Sex: Male
  Weight: 120 kg

DRUGS (2)
  1. COCODAMOL [Suspect]
     Active Substance: ACETAMINOPHEN\CODEINE PHOSPHATE
     Dosage: 30/500 2 TABLETS AT 8 PM (SATURDAY) AND 5 AM (SUNDAY)
     Route: 065
  2. TRAMADOL. [Suspect]
     Active Substance: TRAMADOL
     Dosage: 100 MG AT 12 PM (SUNDAY)
     Route: 065

REACTIONS (3)
  - Feeling abnormal [Unknown]
  - Back pain [Unknown]
  - Chills [Recovered/Resolved]

NARRATIVE: CASE EVENT DATE: 20210206
